FAERS Safety Report 5086268-X (Version None)
Quarter: 2006Q3

REPORT INFORMATION
  Report Type: 
  Country: None (occurrence: None)
  Receive Date: 20060703
  Receipt Date: 20050916
  Transmission Date: 20061208
  Serious: No
  Sender: FDA-Public Use
  Company Number: 2005S1009268

PATIENT
  Age: 27 Year
  Sex: Male

DRUGS (7)
  1. CLOZAPINE [Suspect]
     Dosage: SEE IMAGE
     Route: 048
     Dates: start: 20050210, end: 20050907
  2. CLOZAPINE [Suspect]
     Dosage: SEE IMAGE
     Route: 048
     Dates: start: 20050908
  3. CLOZAPINE [Suspect]
     Dosage: SEE IMAGE
     Route: 048
     Dates: start: 20050908
  4. GEMFIBROZIL [Concomitant]
  5. VALPROATE SODIUM [Concomitant]
  6. ATENOLOL [Concomitant]
  7. RISPERIDONE [Concomitant]

REACTIONS (1)
  - GRANULOCYTOPENIA [None]
